FAERS Safety Report 21781395 (Version 10)
Quarter: 2023Q1

REPORT INFORMATION
  Report Type: Spontaneous
  Country: US (occurrence: US)
  Receive Date: 20221227
  Receipt Date: 20230329
  Transmission Date: 20230418
  Serious: Yes (Hospitalization, Other)
  Sender: FDA-Public Use
  Company Number: US-PFIZER INC-202201387207

PATIENT
  Age: 7 Year
  Sex: Male
  Weight: 13.61 kg

DRUGS (3)
  1. GENOTROPIN [Suspect]
     Active Substance: SOMATROPIN
     Indication: Short-bowel syndrome
     Dosage: 0.8 MG, 1X/DAY
     Route: 058
     Dates: start: 202210
  2. GENOTROPIN [Suspect]
     Active Substance: SOMATROPIN
     Indication: Weight gain poor
  3. GENOTROPIN [Suspect]
     Active Substance: SOMATROPIN
     Indication: Growth retardation

REACTIONS (3)
  - Wrong technique in device usage process [Unknown]
  - Device breakage [Unknown]
  - Off label use [Unknown]

NARRATIVE: CASE EVENT DATE: 20220101
